FAERS Safety Report 10004467 (Version 2)
Quarter: 2014Q1

REPORT INFORMATION
  Report Type: Spontaneous
  Country: FR (occurrence: FR)
  Receive Date: 20140312
  Receipt Date: 20140327
  Transmission Date: 20141002
  Serious: Yes (Other)
  Sender: FDA-Public Use
  Company Number: FR-PFIZER INC-2014070250

PATIENT
  Age: 88 Year
  Sex: Female

DRUGS (4)
  1. ATENOLOL [Suspect]
     Indication: HYPERTENSION
     Dosage: 25 MG, 2X/DAY
     Route: 065
     Dates: start: 201402
  2. ATENOLOL [Interacting]
     Indication: EXTRASYSTOLES
  3. APROVEL [Interacting]
     Dosage: 150 MG, 2X/DAY
     Route: 065
  4. LASILIX [Concomitant]
     Dosage: 20 MG, 1X/DAY (QAM)

REACTIONS (5)
  - Drug interaction [Not Recovered/Not Resolved]
  - Hypertension [Not Recovered/Not Resolved]
  - Drug ineffective [Not Recovered/Not Resolved]
  - Middle insomnia [Not Recovered/Not Resolved]
  - Tinnitus [Not Recovered/Not Resolved]
